FAERS Safety Report 4340777-7 (Version None)
Quarter: 2004Q2

REPORT INFORMATION
  Report Type: 
  Country: None (occurrence: None)
  Receive Date: 20040419
  Receipt Date: 20020826
  Transmission Date: 20050107
  Serious: No
  Sender: FDA-Public Use
  Company Number: US-GLAXOSMITHKLINE-A0379274A

PATIENT
  Age: 59 Year
  Sex: Male

DRUGS (8)
  1. ESKALITH [Suspect]
     Dosage: 300MG SEE DOSAGE TEXT
     Route: 048
     Dates: start: 19830101
  2. AVANDIA [Concomitant]
  3. DIOVAN [Concomitant]
  4. TRICOR [Concomitant]
  5. METOPROLOL [Concomitant]
  6. NEURONTIN [Concomitant]
  7. CARAFATE [Concomitant]
  8. LITHIUM [Concomitant]

REACTIONS (2)
  - GASTRIC DISORDER [None]
  - PSORIASIS [None]
